FAERS Safety Report 8474083-6 (Version None)
Quarter: 2012Q2

REPORT INFORMATION
  Report Type: 
  Country: None (occurrence: None)
  Receive Date: 20120628
  Receipt Date: 20110706
  Transmission Date: 20120825
  Serious: Yes (Other)
  Sender: FDA-Public Use
  Company Number: US-MYLANLABS-2011S1008504

PATIENT
  Age: 26 Year
  Sex: Male
  Weight: 99.79 kg

DRUGS (7)
  1. CLOZAPINE [Suspect]
     Route: 048
     Dates: start: 20100701, end: 20110525
  2. ATIVAN [Concomitant]
  3. ARTANE [Concomitant]
  4. PROZAC [Concomitant]
     Dates: start: 20100901
  5. TRILEPTAL [Concomitant]
  6. TRILEPTAL [Concomitant]
  7. CLOZAPINE [Suspect]
     Indication: SCHIZOPHRENIA
     Route: 048
     Dates: start: 20100701, end: 20110525

REACTIONS (2)
  - GRANULOCYTOPENIA [None]
  - WHITE BLOOD CELL COUNT DECREASED [None]
